FAERS Safety Report 4738512-3 (Version None)
Quarter: 2005Q3

REPORT INFORMATION
  Report Type: 
  Country: None (occurrence: None)
  Receive Date: 20050809
  Receipt Date: 20050729
  Transmission Date: 20060218
  Serious: Yes (Life-Threatening, Hospitalization)
  Sender: FDA-Public Use
  Company Number: GB-JNJFOC-20050800423

PATIENT
  Age: 71 Year
  Sex: Female

DRUGS (1)
  1. IMODIUM [Suspect]
     Indication: DIARRHOEA
     Dosage: TOOK 2 TABLETS THEN 1 MORE FOUR HOURS LATER
     Route: 048

REACTIONS (5)
  - AMNESIA [None]
  - CARDIAC ARREST [None]
  - CIRCULATORY COLLAPSE [None]
  - DYSKINESIA [None]
  - PHARYNGEAL OEDEMA [None]
